FAERS Safety Report 7444435-1 (Version None)
Quarter: 2011Q2

REPORT INFORMATION
  Report Type: 
  Country: None (occurrence: None)
  Receive Date: 20110429
  Receipt Date: 20110322
  Transmission Date: 20111010
  Serious: Yes (Other)
  Sender: FDA-Public Use
  Company Number: US-BAYER-2010-002220

PATIENT
  Age: 28 Year
  Sex: Female
  Weight: 93.878 kg

DRUGS (12)
  1. SINGULAIR [Concomitant]
  2. CLARITIN [Concomitant]
  3. ALBUTEROL [Concomitant]
  4. YASMIN [Suspect]
     Dosage: UNK UNK, QD
     Route: 048
     Dates: start: 20060101
  5. OCELLA [Suspect]
     Dosage: UNK UNK, QD
     Route: 048
     Dates: start: 20060101
  6. ADVAIR DISKUS 100/50 [Concomitant]
  7. YAZ [Suspect]
     Dosage: UNK UNK, QD
     Route: 048
     Dates: start: 20060101
  8. NEURONTIN [Concomitant]
  9. PERCOCET [Concomitant]
  10. PRILOSEC [Concomitant]
  11. SOMA [Concomitant]
  12. ERRIN [Concomitant]

REACTIONS (4)
  - CHOLECYSTITIS CHRONIC [None]
  - GALLBLADDER DISORDER [None]
  - MENTAL DISORDER [None]
  - GALLBLADDER INJURY [None]
